FAERS Safety Report 17799884 (Version 1)
Quarter: 2020Q2

REPORT INFORMATION
  Report Type: Spontaneous
  Country: US (occurrence: US)
  Receive Date: 20200518
  Receipt Date: 20200518
  Transmission Date: 20200714
  Serious: Yes (Other)
  Sender: FDA-Public Use
  Company Number: US-NAPPMUNDI-USA-2020-0153139

PATIENT
  Sex: Male

DRUGS (1)
  1. MORPHINE SULFATE (SIMILAR TO NDA 19-516) [Suspect]
     Active Substance: MORPHINE SULFATE
     Indication: PAIN
     Dosage: 400 MG, BID
     Route: 065

REACTIONS (5)
  - Drug dependence [Unknown]
  - Suicidal ideation [Unknown]
  - Mental impairment [Unknown]
  - Agitation [Unknown]
  - Memory impairment [Unknown]
